FAERS Safety Report 7920914-5 (Version None)
Quarter: 2011Q4

REPORT INFORMATION
  Report Type: 
  Country: None (occurrence: None)
  Receive Date: 20111117
  Receipt Date: 20111006
  Transmission Date: 20120403
  Serious: No
  Sender: FDA-Public Use
  Company Number: US-GLAXOSMITHKLINE-A0948725A

PATIENT
  Age: 61 Year
  Sex: Male

DRUGS (3)
  1. VOTRIENT [Suspect]
     Indication: RENAL CANCER
     Dosage: 400MG PER DAY
     Route: 048
     Dates: start: 20110124, end: 20110901
  2. MULTI-VITAMIN [Concomitant]
  3. SYNTHROID [Concomitant]

REACTIONS (1)
  - TREATMENT FAILURE [None]
